FAERS Safety Report 4324901-8 (Version None)
Quarter: 2004Q1

REPORT INFORMATION
  Report Type: 
  Country: None (occurrence: None)
  Receive Date: 20040323
  Receipt Date: 20040203
  Transmission Date: 20041129
  Serious: No
  Sender: FDA-Public Use
  Company Number: M04-341-028

PATIENT

DRUGS (1)
  1. VELCADE [Suspect]

REACTIONS (1)
  - OEDEMA [None]
